FAERS Safety Report 14193389 (Version 1)
Quarter: 2017Q4

REPORT INFORMATION
  Report Type: Spontaneous
  Country: US (occurrence: US)
  Receive Date: 20171115
  Receipt Date: 20171115
  Transmission Date: 20180321
  Serious: No
  Sender: FDA-Public Use
  Company Number: US-BAUSCH-BL-2017-001515

PATIENT
  Sex: Female

DRUGS (1)
  1. XENAZINE [Suspect]
     Active Substance: TETRABENAZINE
     Indication: TARDIVE DYSKINESIA
     Dosage: 3 TABLETS ORALLY IN THE MORNING, 2 TABLETS AT NOON, AND 2 TABLETS IN THE EVENING
     Route: 048
     Dates: start: 201107

REACTIONS (3)
  - Disease recurrence [Unknown]
  - Drug dose omission [Unknown]
  - Off label use [Unknown]
